FAERS Safety Report 23242185 (Version 1)
Quarter: 2023Q4

REPORT INFORMATION
  Report Type: Spontaneous
  Country: US (occurrence: US)
  Receive Date: 20231129
  Receipt Date: 20231129
  Transmission Date: 20240110
  Serious: Yes (Other)
  Sender: FDA-Public Use
  Company Number: US-MYLANLABS-2023M1126289

PATIENT
  Age: 17 Year
  Sex: Female

DRUGS (6)
  1. PREDNISONE [Suspect]
     Active Substance: PREDNISONE
     Indication: Chorioretinitis
     Dosage: 1 MILLIGRAM/KILOGRAM, QD, WITH SLOW TAPERING
     Route: 048
  2. PREDNISONE [Suspect]
     Active Substance: PREDNISONE
     Dosage: 20 MILLIGRAM, QD
     Route: 048
  3. PREDNISONE [Suspect]
     Active Substance: PREDNISONE
     Dosage: 0.75 MILLIGRAM/KILOGRAM, QD, WITH GRADUAL TAPERING
     Route: 048
  4. MYCOPHENOLATE MOFETIL [Suspect]
     Active Substance: MYCOPHENOLATE MOFETIL
     Indication: Chorioretinitis
     Dosage: 250 MILLIGRAM, BID
     Route: 048
  5. MYCOPHENOLATE MOFETIL [Suspect]
     Active Substance: MYCOPHENOLATE MOFETIL
     Dosage: 1000 MILLIGRAM, BID, INCREASE THE DOSE OF MYCOPHENOLATE MOFETIL
     Route: 065
  6. ADALIMUMAB [Suspect]
     Active Substance: ADALIMUMAB\ISOPROPYL ALCOHOL
     Indication: Chorioretinitis
     Dosage: UNK
     Route: 058

REACTIONS (3)
  - Drug ineffective [Unknown]
  - Skin disorder [Unknown]
  - Off label use [Unknown]
